FAERS Safety Report 5212969-6 (Version None)
Quarter: 2007Q1

REPORT INFORMATION
  Report Type: 
  Country: None (occurrence: None)
  Receive Date: 20070116
  Receipt Date: 20070108
  Transmission Date: 20070707
  Serious: Yes (Life-Threatening, Hospitalization)
  Sender: FDA-Public Use
  Company Number: 310023M06FRA

PATIENT
  Age: 36 Year
  Sex: Female

DRUGS (3)
  1. GONAL-F [Suspect]
     Indication: INFERTILITY
     Dates: start: 20061027
  2. GONADORELIN INJ [Suspect]
     Indication: INFERTILITY
     Dates: start: 20061004
  3. OVITELLE (CHORIOGONADOTROPIN ALFA) [Suspect]
     Dosage: 250 MCG, ONCE
     Dates: start: 20061001

REACTIONS (11)
  - ABDOMINAL PAIN [None]
  - ASTHENIA [None]
  - BACK PAIN [None]
  - COMPLEMENT FACTOR C4 DECREASED [None]
  - HAEMOLYTIC ANAEMIA [None]
  - NAUSEA [None]
  - OVARIAN HYPERSTIMULATION SYNDROME [None]
  - RENAL FAILURE ACUTE [None]
  - THROMBOCYTOPENIA [None]
  - THROMBOTIC MICROANGIOPATHY [None]
  - VOMITING [None]
